FAERS Safety Report 17076847 (Version 6)
Quarter: 2020Q2

REPORT INFORMATION
  Report Type: Spontaneous
  Country: US (occurrence: US)
  Receive Date: 20191126
  Receipt Date: 20200603
  Transmission Date: 20200713
  Serious: Yes (Other)
  Sender: FDA-Public Use
  Company Number: US-SA-2019SA323189

PATIENT

DRUGS (2)
  1. AMLODIPINE BESILATE [Suspect]
     Active Substance: AMLODIPINE BESYLATE
     Indication: HYPERTENSION
     Dosage: UNK
     Dates: end: 2020
  2. DUPIXENT [Suspect]
     Active Substance: DUPILUMAB
     Indication: ASTHMA
     Dosage: 200 MG, QOW
     Route: 058
     Dates: start: 20161106

REACTIONS (13)
  - Urinary tract infection fungal [Recovering/Resolving]
  - Rash [Unknown]
  - Peripheral swelling [Recovering/Resolving]
  - Neoplasm malignant [Unknown]
  - Joint swelling [Recovering/Resolving]
  - Throat tightness [Recovering/Resolving]
  - Skin exfoliation [Recovering/Resolving]
  - Insomnia [Unknown]
  - Wheezing [Unknown]
  - Blister [Unknown]
  - Burning sensation [Recovered/Resolved]
  - Blood pressure increased [Unknown]
  - Back pain [Recovering/Resolving]

NARRATIVE: CASE EVENT DATE: 2020
